FAERS Safety Report 8403100-4 (Version None)
Quarter: 2012Q2

REPORT INFORMATION
  Report Type: 
  Country: None (occurrence: None)
  Receive Date: 20120601
  Receipt Date: 20120524
  Transmission Date: 20120825
  Serious: Yes (Hospitalization)
  Sender: FDA-Public Use
  Company Number: US-JNJFOC-20120520795

PATIENT
  Sex: Female
  Weight: 146.5 kg

DRUGS (20)
  1. XARELTO [Suspect]
     Indication: THROMBOSIS PROPHYLAXIS
     Route: 048
     Dates: start: 20111029
  2. EPINEPHRINE [Concomitant]
     Indication: SURGERY
     Dates: start: 20111229
  3. PROPOFOL [Concomitant]
     Indication: ANAESTHESIA
     Dates: start: 20111229
  4. MORPHINE [Concomitant]
     Indication: PAIN
     Dates: start: 20111229, end: 20120101
  5. REGULAR INSULIN [Concomitant]
     Indication: DIABETES MELLITUS
     Dates: start: 20111229
  6. XYLOCAINE [Concomitant]
     Indication: ANAESTHESIA
     Dates: start: 20111229
  7. JANUMET [Concomitant]
     Indication: DIABETES MELLITUS
  8. PERCOCET [Concomitant]
     Indication: PAIN
  9. MIDAZOLAM [Concomitant]
     Indication: ANAESTHESIA
     Dates: start: 20111229
  10. GABAPENTIN [Concomitant]
     Indication: PAIN
  11. MICARDIS HCT [Concomitant]
     Indication: HYPERTENSION
  12. VANCOMYCIN [Concomitant]
     Indication: PREMEDICATION
     Dates: start: 20111229, end: 20111230
  13. CLORPACTIN [Concomitant]
     Indication: SURGERY
     Dates: start: 20111229
  14. LACTATED RINGER'S [Concomitant]
     Indication: DEHYDRATION
     Dates: start: 20111229, end: 20111230
  15. SCOPOLAMINE [Concomitant]
     Indication: NAUSEA
     Dates: start: 20111229
  16. KETOROLAC TROMETHAMINE [Concomitant]
     Indication: PAIN
     Dates: start: 20111229, end: 20111230
  17. QUELICIN [Concomitant]
     Indication: ANAESTHESIA
     Dates: start: 20111229
  18. BUPIVACAINE HYDROCHLORIDE W/EPINEPHRINE [Concomitant]
     Indication: ANAESTHESIA
     Dates: start: 20111229
  19. LOSARTAN POTASSIUM [Concomitant]
     Indication: HYPERTENSION
     Dates: start: 20111229
  20. FENTANYL-100 [Concomitant]
     Indication: ANAESTHESIA

REACTIONS (1)
  - PULMONARY EMBOLISM [None]
